FAERS Safety Report 13474703 (Version 3)
Quarter: 2018Q1

REPORT INFORMATION
  Report Type: Spontaneous
  Country: US (occurrence: US)
  Receive Date: 20170424
  Receipt Date: 20180123
  Transmission Date: 20180508
  Serious: No
  Sender: FDA-Public Use
  Company Number: US-AMGEN-USASP2017034165

PATIENT
  Age: 81 Year
  Sex: Male

DRUGS (2)
  1. REPATHA [Suspect]
     Active Substance: EVOLOCUMAB
     Indication: HYPERLIPIDAEMIA
     Dosage: UNK, Q2WK
     Route: 065
     Dates: end: 20170301
  2. REPATHA [Suspect]
     Active Substance: EVOLOCUMAB
     Indication: TREATMENT FAILURE

REACTIONS (1)
  - Pruritus [Not Recovered/Not Resolved]
